FAERS Safety Report 5145414-X (Version None)
Quarter: 2006Q4

REPORT INFORMATION
  Report Type: 
  Country: None (occurrence: None)
  Receive Date: 20061031
  Receipt Date: 20061016
  Transmission Date: 20070319
  Serious: Yes (Life-Threatening, Other)
  Sender: FDA-Public Use
  Company Number: 2006S1008370

PATIENT
  Age: 49 Year
  Sex: Female
  Weight: 49.8957 kg

DRUGS (8)
  1. FENTANYL TRANSDERMAL SYSTEM [Suspect]
     Indication: DYSTONIA
     Dosage: 50 UG/HR; Q3D; TDER
     Route: 062
     Dates: start: 20060814, end: 20060911
  2. FENTANYL TRANSDERMAL SYSTEM [Suspect]
     Indication: DYSTONIA
     Dosage: 75 UG/HR; Q3D; TDER
     Route: 062
     Dates: start: 20060911
  3. FLUOXETINE [Concomitant]
  4. DIAZEPAM [Concomitant]
  5. PERCOCET [Concomitant]
  6. AMBIEN [Concomitant]
  7. ACETAMINOPHEN AND HYDROCODONE BITARTRATE [Concomitant]
  8. FENTANYL TRANSDERMAL SYSTEM [Suspect]

REACTIONS (4)
  - APPLICATION SITE RASH [None]
  - DRUG INEFFECTIVE [None]
  - PHARMACEUTICAL PRODUCT COMPLAINT [None]
  - STRESS [None]
